FAERS Safety Report 9455727 (Version 1)
Quarter: 2013Q3

REPORT INFORMATION
  Report Type: Spontaneous
  Country: FR (occurrence: FR)
  Receive Date: 20130813
  Receipt Date: 20130813
  Transmission Date: 20140515
  Serious: Yes (Life-Threatening, Hospitalization, Disabling, Congenital Anomaly)
  Sender: FDA-Public Use
  Company Number: FR-SANOFI-AVENTIS-2013SA079078

PATIENT
  Age: 1 Day
  Sex: Female
  Weight: 2.79 kg

DRUGS (2)
  1. AMAREL [Suspect]
     Indication: MATERNAL EXPOSURE TIMING UNSPECIFIED
     Route: 064
     Dates: start: 201210, end: 20130404
  2. GLUCOPHAGE [Suspect]
     Indication: MATERNAL EXPOSURE TIMING UNSPECIFIED
     Route: 064
     Dates: start: 201210, end: 20130404

REACTIONS (4)
  - Heart disease congenital [Not Recovered/Not Resolved]
  - Foetal exposure timing unspecified [Unknown]
  - Talipes [Not Recovered/Not Resolved]
  - Hemivertebra [Not Recovered/Not Resolved]
